FAERS Safety Report 14762725 (Version 1)
Quarter: 2018Q2

REPORT INFORMATION
  Report Type: Spontaneous
  Country: US (occurrence: US)
  Receive Date: 20180416
  Receipt Date: 20180416
  Transmission Date: 20180711
  Serious: No
  Sender: FDA-Public Use
  Company Number: US-BIOVITRUM-2017US0287

PATIENT
  Age: 54 Year
  Sex: Female

DRUGS (1)
  1. KEPIVANCE [Suspect]
     Active Substance: PALIFERMIN
     Route: 042

REACTIONS (4)
  - Fatigue [Unknown]
  - Feeling hot [Unknown]
  - Influenza like illness [Unknown]
  - Genital burning sensation [Unknown]

NARRATIVE: CASE EVENT DATE: 20170313
